FAERS Safety Report 18115639 (Version 2)
Quarter: 2020Q3

REPORT INFORMATION
  Report Type: Spontaneous
  Country: JP (occurrence: JP)
  Receive Date: 20200805
  Receipt Date: 20200819
  Transmission Date: 20201103
  Serious: Yes (Death, Other)
  Sender: FDA-Public Use
  Company Number: JP-ELI_LILLY_AND_COMPANY-JP202008000634

PATIENT
  Age: 23 Year
  Sex: Female
  Weight: 41.3 kg

DRUGS (9)
  1. BAYASPIRIN [Concomitant]
     Active Substance: ASPIRIN
     Indication: PRODUCT USED FOR UNKNOWN INDICATION
     Dosage: 100 MG, DAILY
     Route: 065
     Dates: end: 20190816
  2. DUPHASTON [Suspect]
     Active Substance: DYDROGESTERONE
     Indication: AMENORRHOEA
     Dosage: 10 MG, DAILY
     Route: 048
     Dates: start: 20190720, end: 20190729
  3. ADCIRCA [Suspect]
     Active Substance: TADALAFIL
     Indication: PULMONARY ARTERIAL HYPERTENSION
     Dosage: 40 MG, DAILY
     Route: 065
     Dates: start: 20160227, end: 20190816
  4. BISOPROLOL FUMARATE. [Concomitant]
     Active Substance: BISOPROLOL FUMARATE
     Indication: ATRIAL SEPTAL DEFECT
     Dosage: 0.625 MG, DAILY
     Route: 065
     Dates: end: 20190816
  5. VOLIBRIS [Suspect]
     Active Substance: AMBRISENTAN
     Indication: PULMONARY ARTERIAL HYPERTENSION
     Dosage: 5 MG, DAILY
     Route: 065
     Dates: start: 20160409, end: 20190816
  6. FUROSEMIDE. [Concomitant]
     Active Substance: FUROSEMIDE
     Indication: ATRIAL SEPTAL DEFECT
     Dosage: 20 MG, DAILY
     Route: 065
     Dates: end: 20190816
  7. UPTRAVI [Suspect]
     Active Substance: SELEXIPAG
     Indication: PULMONARY ARTERIAL HYPERTENSION
     Dosage: 0.2 MG, BID
     Route: 048
     Dates: start: 20190516, end: 20190531
  8. UPTRAVI [Suspect]
     Active Substance: SELEXIPAG
     Dosage: 0.4 MG, BID
     Route: 048
     Dates: start: 20190601, end: 20190816
  9. HALFDIGOXIN [Concomitant]
     Active Substance: DIGOXIN
     Indication: ATRIAL SEPTAL DEFECT
     Dosage: 0.125 MG, DAILY
     Route: 065
     Dates: end: 20190816

REACTIONS (4)
  - Genital haemorrhage [Unknown]
  - Anaemia [Unknown]
  - Oedema [Recovered/Resolved]
  - Pulmonary arterial hypertension [Fatal]

NARRATIVE: CASE EVENT DATE: 201905
